FAERS Safety Report 9298264 (Version 1)
Quarter: 2013Q2

REPORT INFORMATION
  Report Type: Spontaneous
  Country: BR (occurrence: BR)
  Receive Date: 20130520
  Receipt Date: 20130520
  Transmission Date: 20140414
  Serious: Yes (Other)
  Sender: FDA-Public Use
  Company Number: BR-SANOFI-AVENTIS-2013SA048667

PATIENT
  Age: 39 Year
  Sex: Male
  Weight: 70 kg

DRUGS (7)
  1. STILNOX [Suspect]
     Indication: SLEEP DISORDER
     Route: 048
     Dates: start: 20130508, end: 20130510
  2. OMEPRAZOLE [Concomitant]
     Indication: GASTRIC DISORDER
     Route: 048
     Dates: start: 2008
  3. DEPAKENE [Concomitant]
     Indication: CONVULSION
     Route: 048
     Dates: start: 2008
  4. RISPERIDONE [Concomitant]
     Indication: SOMNOLENCE
     Route: 048
     Dates: start: 2008
  5. AMITRIPTYLINE HYDROCHLORIDE [Concomitant]
     Indication: ANTIDEPRESSANT THERAPY
     Route: 048
     Dates: start: 2008
  6. FENERGAN [Concomitant]
     Indication: APPETITE DISORDER
     Route: 048
     Dates: start: 2008
  7. LITHIUM CARBONATE [Concomitant]
     Indication: AFFECTIVE DISORDER
     Route: 048
     Dates: start: 2008

REACTIONS (3)
  - Haemorrhage [Unknown]
  - Abdominal pain upper [Unknown]
  - Drug ineffective [Unknown]
